FAERS Safety Report 5902584-0 (Version None)
Quarter: 2008Q3

REPORT INFORMATION
  Report Type: 
  Country: None (occurrence: None)
  Receive Date: 20080924
  Receipt Date: 20080917
  Transmission Date: 20090109
  Serious: Yes (Life-Threatening)
  Sender: FDA-Public Use
  Company Number: 200809AGG00829

PATIENT
  Age: 87 Year
  Sex: Female

DRUGS (6)
  1. TIROFIBAN HYDROCHLORIDE (TIROFIBAN HCL) (33 ML, 12 ML) [Suspect]
     Indication: ACUTE MYOCARDIAL INFARCTION
     Dosage: (33 ML TOTAL INTRAVENOUS BOLUS), (INTRAVENOUS DRIP)
     Route: 042
     Dates: start: 20080816, end: 20080816
  2. TIROFIBAN HYDROCHLORIDE (TIROFIBAN HCL) (33 ML, 12 ML) [Suspect]
     Indication: ACUTE MYOCARDIAL INFARCTION
     Dosage: (33 ML TOTAL INTRAVENOUS BOLUS), (INTRAVENOUS DRIP)
     Route: 042
     Dates: start: 20080816, end: 20080816
  3. NICARDIPINE HYDROCHLORIDE [Concomitant]
  4. URAPIDIL [Concomitant]
  5. VALSARTAN [Concomitant]
  6. ATENOLOL [Concomitant]

REACTIONS (3)
  - CARDIOGENIC SHOCK [None]
  - HAEMOGLOBIN DECREASED [None]
  - INJECTION SITE HAEMATOMA [None]
